FAERS Safety Report 6621862-3 (Version None)
Quarter: 2010Q1

REPORT INFORMATION
  Report Type: 
  Country: None (occurrence: None)
  Receive Date: 20100223
  Receipt Date: 20091221
  Transmission Date: 20100710
  Serious: No
  Sender: FDA-Public Use
  Company Number: 003757

PATIENT
  Sex: Female

DRUGS (1)
  1. CIMZIA [Suspect]
     Dosage: 400 MG MONTHLY SUBCUTANEOUS
     Route: 058

REACTIONS (2)
  - BODY TEMPERATURE INCREASED [None]
  - OROPHARYNGEAL PAIN [None]
